FAERS Safety Report 23577908 (Version 4)
Quarter: 2024Q2

REPORT INFORMATION
  Report Type: Report from Study
  Country: US (occurrence: US)
  Receive Date: 20240228
  Receipt Date: 20240526
  Transmission Date: 20240715
  Serious: Yes (Other)
  Sender: FDA-Public Use
  Company Number: US-ABBVIE-5656510

PATIENT
  Age: 60 Year
  Sex: Male
  Weight: 74.842 kg

DRUGS (25)
  1. RINVOQ [Suspect]
     Active Substance: UPADACITINIB
     Indication: Rheumatoid arthritis
     Dosage: LAST ADMIN DATE- 2023?FORM STRENGTH 45 MILLIGRAM
     Route: 048
     Dates: start: 20230813
  2. RINVOQ [Suspect]
     Active Substance: UPADACITINIB
     Indication: Rheumatoid arthritis
     Dosage: FORM STRENGTH: 30 MILLIGRAM
     Route: 048
     Dates: start: 20231106
  3. RINVOQ [Suspect]
     Active Substance: UPADACITINIB
     Indication: Rheumatoid arthritis
     Dosage: LAST ADMIN DATE- AUG 2023
     Route: 048
     Dates: start: 20230811
  4. VITAMIN C [Concomitant]
     Active Substance: ASCORBIC ACID
     Indication: Product used for unknown indication
     Dosage: TAKE 1,000 MG BY MOUTH DAILY
  5. XANAX [Concomitant]
     Active Substance: ALPRAZOLAM
     Indication: Anxiety
     Dosage: TAKE 1/2 TO 1 TABLET BY MOUTH TWO TIMES A DAY AS NEEDED
  6. NORCO [Concomitant]
     Active Substance: ACETAMINOPHEN\HYDROCODONE BITARTRATE
     Indication: Pain
     Dosage: 7.5-325 MG PER TABLET
     Route: 048
  7. MUPIROCIN [Concomitant]
     Active Substance: MUPIROCIN
     Indication: Product used for unknown indication
     Dosage: APPLY THIN LAYER INSIDE NOSE TWICE DAILY?FORM STRENGTH: 2 PERCENT
  8. PROBIOTICS NOS [Concomitant]
     Active Substance: PROBIOTICS NOS
     Indication: Product used for unknown indication
     Dosage: 1 TABLET TWICE DAILY
  9. PROBIOTICS NOS [Concomitant]
     Active Substance: PROBIOTICS NOS
     Indication: Product used for unknown indication
     Dosage: 1 TABLET TWICE DAILY
  10. XYZAL [Concomitant]
     Active Substance: LEVOCETIRIZINE DIHYDROCHLORIDE
     Indication: Product used for unknown indication
     Dosage: TAKE 5 MG BY MOUTH
     Route: 048
  11. CALCIUM CITRATE [Concomitant]
     Active Substance: CALCIUM CITRATE
     Indication: Product used for unknown indication
     Dosage: TAKE 330 MG BY MOUTH DAILY
  12. ZINC [Concomitant]
     Active Substance: PYRITHIONE ZINC\ZINC\ZINC CHLORIDE
     Indication: Product used for unknown indication
     Dosage: TAKE 50 MG BY MOUTH DAILY?FORM STRENGTH: 50 MILLIGRAM
  13. FISH OIL\OMEGA-3 FATTY ACIDS [Concomitant]
     Active Substance: FISH OIL\OMEGA-3 FATTY ACIDS
     Indication: Product used for unknown indication
     Dosage: 1,000 MG CAPSULE TAKE 3 CAPSULE BY MOUTH DAILY
     Route: 048
  14. AMLODIPINE\VALSARTAN [Concomitant]
     Active Substance: AMLODIPINE\VALSARTAN
     Indication: Product used for unknown indication
     Dosage: 5 - 160 MG TAKE 1 TABLET BY MOUTH DAILY
  15. ALBUTEROL SULFATE [Concomitant]
     Active Substance: ALBUTEROL SULFATE
     Indication: Product used for unknown indication
     Dosage: INHALE ONE TO TWO PUFFS BY MOUTH EVERY 4 HOURS AS NEEDED?90 MCG/ACTUATION INHALER
  16. AMBIEN [Concomitant]
     Active Substance: ZOLPIDEM TARTRATE
     Indication: Sleep disorder
     Dosage: TIME INTERVAL: AS NECESSARY: TAKE 1/2 TO 1 TABLET BY MOUTH AT BEDTIME AS NEEDED?FORM STRENGTH: 10...
     Route: 048
  17. PEPPERMINT GELS [Concomitant]
     Indication: Product used for unknown indication
     Dosage: 1 TABLET 1 DAILY?ENTERIC COATED
  18. HERBALS [Concomitant]
     Active Substance: HERBALS
     Indication: Product used for unknown indication
     Dosage: TAKE 500 MG BY MOUTH 2 (TWO) TIMES DAILY?FRUIT PO
  19. CIALIS [Concomitant]
     Active Substance: TADALAFIL
     Indication: Erectile dysfunction
     Dosage: TIME INTERVAL: AS NECESSARY: TAKE 0.5-1 TABLETS BY MOUTH DAILY AS NEEDED? FORM STRENGTH: 20 MILLI...
     Route: 048
  20. ASCORBIC ACID [Concomitant]
     Active Substance: ASCORBIC ACID
     Indication: Product used for unknown indication
     Dosage: TAKE 1,000 MG BY MOUTH DAILY?FORM STRENGTH: 1000 MILLIGRAM
  21. VITAMIN D3 [Concomitant]
     Active Substance: CHOLECALCIFEROL
     Indication: Product used for unknown indication
     Dosage: 2,000 IU
  22. ANDROGEL [Concomitant]
     Active Substance: TESTOSTERONE
     Indication: Product used for unknown indication
     Dosage: (50 MG/5 GRAM) TRANSDERMAL GEL PACKET APPLY ONE PACKET TO THE SKIN DAILY?FORM STRENGTH: 1 PERCENT
  23. PATANASE [Concomitant]
     Active Substance: OLOPATADINE HYDROCHLORIDE
     Indication: Product used for unknown indication
     Dosage: 2 SPRAYS BY EACH NOSTRIL ROUTE 2 (TWO) TIMES DAILY? FORM STRENGTH: 0.6 PERCENT
  24. VOLTAREN [Concomitant]
     Active Substance: DICLOFENAC SODIUM
     Indication: Product used for unknown indication
     Dosage: APPLY 2 G TOPICALLY 2 (TWO) TIMES DAILY? FORM STRENGTH: 1 PERCENT
  25. LEVSIN SL [Concomitant]
     Active Substance: HYOSCYAMINE SULFATE
     Indication: Product used for unknown indication
     Dosage: TAKE 1 TABLET AS NEEDED EVERY 4 HOURS?FORM STRENGTH: 0.125 MILLIGRAM

REACTIONS (6)
  - Squamous cell carcinoma of skin [Not Recovered/Not Resolved]
  - Diarrhoea [Recovering/Resolving]
  - Gastrointestinal disorder [Not Recovered/Not Resolved]
  - Abdominal pain upper [Unknown]
  - Basal cell carcinoma [Unknown]
  - Abdominal distension [Not Recovered/Not Resolved]

NARRATIVE: CASE EVENT DATE: 20231201
